FAERS Safety Report 17059831 (Version 1)
Quarter: 2019Q4

REPORT INFORMATION
  Report Type: Spontaneous
  Country: US (occurrence: US)
  Receive Date: 20191121
  Receipt Date: 20191121
  Transmission Date: 20200122
  Serious: Yes (Other)
  Sender: FDA-Public Use
  Company Number: US-NOVOPROD-649157

PATIENT
  Sex: Female

DRUGS (1)
  1. NOVOLOG [Suspect]
     Active Substance: INSULIN ASPART
     Indication: TYPE 1 DIABETES MELLITUS
     Dosage: 40 UNITS PER DAY PLUS 10 UNITS SLIDING SCALE
     Route: 058
     Dates: start: 2017

REACTIONS (3)
  - Blood glucose increased [Unknown]
  - Hypoglycaemic unconsciousness [Recovered/Resolved]
  - Pain [Unknown]
